FAERS Safety Report 7801854-9 (Version None)
Quarter: 2011Q4

REPORT INFORMATION
  Report Type: 
  Country: None (occurrence: None)
  Receive Date: 20111005
  Receipt Date: 20110926
  Transmission Date: 20120403
  Serious: Yes (Other)
  Sender: FDA-Public Use
  Company Number: KAD201109-000019

PATIENT
  Age: 29 Year
  Sex: Male
  Weight: 82 kg

DRUGS (2)
  1. RIBAVIRIN [Suspect]
     Indication: HEPATITIS C
     Dosage: 800 MG/DAY FOR 24 WEEKS
  2. PEGINTERFERON ALFA-2B [Suspect]
     Indication: HEPATITIS C
     Dosage: 120 MICROGRAM/WEEK

REACTIONS (4)
  - HAEMOGLOBIN DECREASED [None]
  - VIITH NERVE PARALYSIS [None]
  - INFECTION IN AN IMMUNOCOMPROMISED HOST [None]
  - VIRAL INFECTION [None]
